FAERS Safety Report 23671581 (Version 2)
Quarter: 2024Q4

REPORT INFORMATION
  Report Type: Report from Study
  Country: DE (occurrence: DE)
  Receive Date: 20240326
  Receipt Date: 20241015
  Transmission Date: 20250114
  Serious: Yes (Hospitalization)
  Sender: ABBVIE
  Company Number: DE-ABBVIE-5691253

PATIENT
  Age: 68 Year
  Sex: Female

DRUGS (1)
  1. RINVOQ [Suspect]
     Active Substance: UPADACITINIB
     Indication: Rheumatoid arthritis
     Route: 048
     Dates: start: 202201

REACTIONS (3)
  - Hip arthroplasty [Recovered/Resolved]
  - Depression [Recovered/Resolved]
  - Wrist surgery [Recovered/Resolved]

NARRATIVE: CASE EVENT DATE: 20230726
